FAERS Safety Report 15320983 (Version 1)
Quarter: 2018Q3

REPORT INFORMATION
  Report Type: Spontaneous
  Country: US (occurrence: US)
  Receive Date: 20180827
  Receipt Date: 20180827
  Transmission Date: 20181010
  Serious: No
  Sender: FDA-Public Use
  Company Number: US-SA-2018SA235400

PATIENT
  Sex: Female

DRUGS (1)
  1. DUPIXENT [Suspect]
     Active Substance: DUPILUMAB
     Indication: DERMATITIS ATOPIC
     Dosage: UNK, QOW
     Route: 058
     Dates: start: 201708, end: 201801

REACTIONS (10)
  - Skin disorder [Unknown]
  - Sleep disorder [Unknown]
  - Skin haemorrhage [Unknown]
  - Dry skin [Unknown]
  - Skin weeping [Unknown]
  - Dermatitis [Unknown]
  - Pruritus [Unknown]
  - Scratch [Unknown]
  - Skin exfoliation [Unknown]
  - Skin fissures [Unknown]

NARRATIVE: CASE EVENT DATE: 201807
